FAERS Safety Report 9880275 (Version 1)
Quarter: 2014Q1

REPORT INFORMATION
  Report Type: Spontaneous
  Country: GB (occurrence: GB)
  Receive Date: 20140207
  Receipt Date: 20140207
  Transmission Date: 20141002
  Serious: Yes (Disabling, Other)
  Sender: FDA-Public Use
  Company Number: GB-DRREDDYS-GER/UKI/14/0037783

PATIENT
  Age: 35 Year
  Sex: Male
  Weight: 55 kg

DRUGS (7)
  1. LAMOTRIGINE [Suspect]
     Indication: AFFECTIVE DISORDER
     Route: 048
     Dates: start: 20131220, end: 20140120
  2. RISPERIDONE [Suspect]
     Indication: PRODUCT USED FOR UNKNOWN INDICATION
  3. BISOPROLOL [Concomitant]
     Indication: TACHYCARDIA
     Route: 048
     Dates: start: 2011
  4. DIAZEPAM [Concomitant]
     Indication: AGITATION
     Route: 048
     Dates: start: 2011
  5. LITHIUM CARBONATE [Concomitant]
     Indication: AFFECTIVE DISORDER
     Route: 048
     Dates: start: 2009
  6. OMEPRAZOLE [Concomitant]
     Indication: GASTRIC PH DECREASED
     Route: 048
     Dates: start: 2011
  7. QUETIAPINE [Concomitant]
     Indication: AFFECTIVE DISORDER
     Route: 048
     Dates: start: 201312

REACTIONS (7)
  - Agitation [Recovered/Resolved]
  - Paranoia [Recovered/Resolved]
  - Rash [Recovered/Resolved]
  - Stomatitis [Recovered/Resolved]
  - Tachycardia [Recovered/Resolved]
  - Decreased appetite [Unknown]
  - Drug hypersensitivity [Unknown]
